FAERS Safety Report 14164539 (Version 3)
Quarter: 2017Q4

REPORT INFORMATION
  Report Type: Report from Study
  Country: GR (occurrence: GR)
  Receive Date: 20171107
  Receipt Date: 20171219
  Transmission Date: 20180321
  Serious: Yes (Death, Life-Threatening, Hospitalization, Other)
  Sender: FDA-Public Use
  Company Number: GR-TAKEDA-2017MPI001295

PATIENT
  Age: 72 Year
  Sex: Female
  Weight: 50 kg

DRUGS (20)
  1. VELCADE [Suspect]
     Active Substance: BORTEZOMIB
     Dosage: 2 MG, UNK
     Route: 058
     Dates: start: 20170516, end: 20170728
  2. CYTOXAN [Suspect]
     Active Substance: CYCLOPHOSPHAMIDE
     Indication: PLASMA CELL MYELOMA
     Dosage: 500 MG, UNK
     Route: 042
     Dates: start: 20170523, end: 20170728
  3. ZOLEDRONIC ACID [Concomitant]
     Active Substance: ZOLEDRONIC ACID
     Dosage: UNK
     Route: 065
  4. DECADRON [Suspect]
     Active Substance: DEXAMETHASONE
     Dosage: 20 MG, UNK
     Route: 048
     Dates: start: 20171009
  5. IMBRUVICA [Suspect]
     Active Substance: IBRUTINIB
     Indication: PLASMA CELL MYELOMA
     Dosage: 840 MG, QD
     Route: 048
     Dates: start: 20170117, end: 20170211
  6. REVLIMID [Suspect]
     Active Substance: LENALIDOMIDE
     Indication: PLASMA CELL MYELOMA
     Dosage: 15 MG, UNK
     Route: 048
     Dates: start: 20170313, end: 20170324
  7. REVLIMID [Suspect]
     Active Substance: LENALIDOMIDE
     Dosage: 10 MG, UNK
     Route: 048
     Dates: start: 20170801, end: 20170808
  8. VELCADE [Suspect]
     Active Substance: BORTEZOMIB
     Dosage: 2 MG, UNK
     Route: 058
     Dates: start: 20170313, end: 20170506
  9. DECADRON [Suspect]
     Active Substance: DEXAMETHASONE
     Dosage: 20 MG, UNK
     Route: 048
     Dates: start: 20170516, end: 20170728
  10. DECADRON [Suspect]
     Active Substance: DEXAMETHASONE
     Dosage: 20 MG, UNK
     Route: 048
     Dates: start: 20170313, end: 20170506
  11. EPOETIN [Concomitant]
     Active Substance: ERYTHROPOIETIN
     Dosage: UNK
     Route: 065
  12. VITAMIN B COMPLEX [Concomitant]
     Active Substance: CYANOCOBALAMIN\DEXPANTHENOL\NIACINAMIDE\PYRIDOXINE HYDROCHLORIDE\RIBOFLAVIN 5^-PHOSPHATE SODIUM\THIAMINE HYDROCHLORIDE\VITAMIN B COMPLEX
     Indication: PERIPHERAL SENSORY NEUROPATHY
     Dosage: UNK
     Route: 065
  13. DECADRON [Suspect]
     Active Substance: DEXAMETHASONE
     Indication: PLASMA CELL MYELOMA
     Dosage: 20 MG, UNK
     Route: 048
     Dates: start: 20170117, end: 20170211
  14. POMALYST [Suspect]
     Active Substance: POMALIDOMIDE
     Indication: PLASMA CELL MYELOMA
     Dosage: UNK
     Dates: start: 20171009, end: 20171205
  15. APIXABAN [Concomitant]
     Active Substance: APIXABAN
     Indication: THROMBOSIS PROPHYLAXIS
     Dosage: UNK
     Route: 065
  16. VELCADE [Suspect]
     Active Substance: BORTEZOMIB
     Indication: PLASMA CELL MYELOMA
     Dosage: 1.3 MG/M2, UNK
     Route: 058
     Dates: start: 20170117, end: 20170211
  17. AMLOPEN [Concomitant]
     Indication: HYPERTENSION
     Dosage: 5 MG, QD
     Route: 048
     Dates: start: 201101
  18. EUTHYROX [Concomitant]
     Active Substance: LEVOTHYROXINE SODIUM
     Indication: AUTOIMMUNE THYROIDITIS
     Dosage: 88 ?G, QD
     Route: 048
     Dates: start: 2011
  19. VELCADE [Suspect]
     Active Substance: BORTEZOMIB
     Dosage: 2 MG, UNK
     Route: 058
     Dates: start: 20171009
  20. PREGABALIN. [Concomitant]
     Active Substance: PREGABALIN
     Indication: PERIPHERAL SENSORY NEUROPATHY
     Dosage: UNK
     Route: 065

REACTIONS (17)
  - Somnolence [Recovered/Resolved]
  - Vomiting [Recovered/Resolved]
  - Oedema peripheral [Not Recovered/Not Resolved]
  - Nausea [Recovered/Resolved]
  - Hypoaesthesia [Not Recovered/Not Resolved]
  - Septic shock [Fatal]
  - Atrial fibrillation [Recovered/Resolved with Sequelae]
  - Hyponatraemia [Recovered/Resolved]
  - Diarrhoea [Recovered/Resolved]
  - Fatigue [Recovered/Resolved]
  - Renal impairment [Not Recovered/Not Resolved]
  - Anaemia [Recovered/Resolved]
  - Acute kidney injury [Recovered/Resolved]
  - Syncope [Recovered/Resolved]
  - Cough [Recovered/Resolved]
  - Diastolic dysfunction [Recovered/Resolved]
  - Decreased appetite [Recovered/Resolved]

NARRATIVE: CASE EVENT DATE: 20170118
